FAERS Safety Report 18790776 (Version 1)
Quarter: 2021Q1

REPORT INFORMATION
  Report Type: Spontaneous
  Country: US (occurrence: US)
  Receive Date: 20210126
  Receipt Date: 20210126
  Transmission Date: 20210419
  Serious: No
  Sender: FDA-Public Use
  Company Number: US-BIOMARINAP-US-2020-133997

PATIENT
  Age: 27 Year
  Sex: Male

DRUGS (2)
  1. PALYNZIQ [Suspect]
     Active Substance: PEGVALIASE-PQPZ
     Indication: PHENYLKETONURIA
     Dosage: 40 MILLIGRAM, QD
     Route: 058
  2. PALYNZIQ [Suspect]
     Active Substance: PEGVALIASE-PQPZ
     Dosage: UNK
     Route: 058
     Dates: start: 20190121

REACTIONS (11)
  - Pain [Recovering/Resolving]
  - Dyspnoea [Recovering/Resolving]
  - COVID-19 [Recovering/Resolving]
  - Rhinorrhoea [Recovering/Resolving]
  - Fatigue [Recovering/Resolving]
  - Cough [Recovering/Resolving]
  - Chills [Recovering/Resolving]
  - SARS-CoV-2 test positive [Recovering/Resolving]
  - Nausea [Recovering/Resolving]
  - Headache [Recovering/Resolving]
  - Hypoaesthesia [Recovering/Resolving]

NARRATIVE: CASE EVENT DATE: 20201217
